FAERS Safety Report 15984754 (Version 1)
Quarter: 2019Q1

REPORT INFORMATION
  Report Type: Spontaneous
  Country: US (occurrence: US)
  Receive Date: 20190219
  Receipt Date: 20190219
  Transmission Date: 20190418
  Serious: Yes (Life-Threatening, Hospitalization, Disabling)
  Sender: FDA-Public Use
  Company Number: None

PATIENT
  Age: 60 Year
  Weight: 93.6 kg

DRUGS (8)
  1. ROSUVASTATIN TABLET [Suspect]
     Active Substance: ROSUVASTATIN
     Indication: HYPERLIPIDAEMIA
     Dosage: ?          QUANTITY:90 TABLET(S);?
     Route: 048
     Dates: start: 20170501, end: 20190205
  2. MILK THISTLE [Concomitant]
     Active Substance: DIETARY SUPPLEMENT\HERBALS\MILK THISTLE
  3. EZETIMIBE 10 MG [Concomitant]
     Active Substance: EZETIMIBE
  4. TRADER JOE^S SUPER VISION [Concomitant]
  5. WILD SALMON OIL [Concomitant]
  6. LEVOTHYROXINE 112 MCG [Concomitant]
     Active Substance: LEVOTHYROXINE
  7. ASPIRIN 81 MG [Concomitant]
     Active Substance: ASPIRIN
  8. VITAMIN D3 [Concomitant]
     Active Substance: CHOLECALCIFEROL

REACTIONS (5)
  - Cerebrovascular accident [None]
  - Myalgia [None]
  - Constipation [None]
  - Transient ischaemic attack [None]
  - Atrial fibrillation [None]

NARRATIVE: CASE EVENT DATE: 20190130
